FAERS Safety Report 8352500-X (Version None)
Quarter: 2012Q2

REPORT INFORMATION
  Report Type: 
  Country: None (occurrence: None)
  Receive Date: 20120511
  Receipt Date: 20120507
  Transmission Date: 20120825
  Serious: Yes (Hospitalization)
  Sender: FDA-Public Use
  Company Number: PHHO2012FR006883

PATIENT
  Sex: Female
  Weight: 56.4 kg

DRUGS (8)
  1. AMLODIPINE BESYLATE [Concomitant]
     Indication: HYPERTENSION
     Dosage: 5 MG, UNK
     Route: 048
     Dates: start: 20111231
  2. NEBIVOLOL HCL [Concomitant]
     Indication: HYPERTENSION
     Dosage: UNK
     Route: 048
     Dates: start: 20111221
  3. NEORAL [Suspect]
     Indication: RENAL TRANSPLANT
     Dosage: 125 MG, BID
     Route: 048
     Dates: start: 20111221, end: 20120430
  4. VALGANCICLOVIR [Suspect]
     Indication: PROPHYLAXIS
     Dosage: 450 MG, BID
     Route: 048
     Dates: start: 20111229, end: 20120430
  5. BACTRIM [Suspect]
     Indication: PROPHYLAXIS
     Dosage: 400 MG, BID
     Route: 048
     Dates: start: 20111224, end: 20120430
  6. PANTOPRAZOLE SODIUM [Concomitant]
     Indication: PROPHYLAXIS
     Dosage: 20 MG, UNK
     Route: 048
     Dates: start: 20120218
  7. NEORAL [Suspect]
     Dosage: UNK
     Route: 048
     Dates: start: 20120501
  8. MYFORTIC [Suspect]
     Indication: RENAL TRANSPLANT
     Dosage: 360 MG, TID
     Route: 048
     Dates: start: 20111221, end: 20120430

REACTIONS (1)
  - AGRANULOCYTOSIS [None]
